FAERS Safety Report 9027658 (Version 2)
Quarter: 2013Q2

REPORT INFORMATION
  Report Type: Spontaneous
  Country: US (occurrence: US)
  Receive Date: 20130124
  Receipt Date: 20130423
  Transmission Date: 20140414
  Serious: No
  Sender: FDA-Public Use
  Company Number: US-BIOGENIDEC-2013BI005182

PATIENT
  Age: 41 Year
  Sex: Female

DRUGS (7)
  1. AVONEX [Suspect]
     Indication: MULTIPLE SCLEROSIS
     Route: 030
     Dates: start: 201212, end: 201212
  2. AVONEX [Suspect]
     Indication: MULTIPLE SCLEROSIS
     Route: 030
     Dates: start: 201212, end: 201212
  3. AVONEX [Suspect]
     Indication: MULTIPLE SCLEROSIS
     Route: 030
     Dates: start: 201212, end: 201212
  4. AVONEX [Suspect]
     Indication: MULTIPLE SCLEROSIS
     Route: 030
     Dates: start: 201212
  5. VITAMIN D3 [Concomitant]
     Indication: PROPHYLAXIS
     Route: 048
     Dates: start: 201212
  6. TRAMADOL [Concomitant]
     Indication: HEADACHE
  7. PROMETHAZINE [Concomitant]
     Indication: NAUSEA

REACTIONS (17)
  - Back pain [Unknown]
  - Paralysis [Recovered/Resolved]
  - Kidney infection [Recovered/Resolved]
  - Urine odour abnormal [Recovered/Resolved]
  - Faeces pale [Not Recovered/Not Resolved]
  - Loss of control of legs [Recovered/Resolved]
  - Somnolence [Not Recovered/Not Resolved]
  - Chromaturia [Recovered/Resolved]
  - Urine abnormality [Not Recovered/Not Resolved]
  - Haemorrhage [Recovered/Resolved]
  - Headache [Recovered/Resolved]
  - Fatigue [Not Recovered/Not Resolved]
  - Muscle tightness [Recovered/Resolved]
  - Vulvovaginal pruritus [Recovered/Resolved]
  - Influenza like illness [Recovered/Resolved]
  - Nausea [Recovered/Resolved]
  - Insomnia [Recovered/Resolved]
